FAERS Safety Report 11247549 (Version 1)
Quarter: 2015Q3

REPORT INFORMATION
  Report Type: Spontaneous
  Country: US (occurrence: US)
  Receive Date: 20150708
  Receipt Date: 20150708
  Transmission Date: 20151125
  Serious: No
  Sender: FDA-Public Use
  Company Number: US-009507513-1506USA013639

PATIENT
  Sex: Female

DRUGS (1)
  1. NEXPLANON [Suspect]
     Active Substance: ETONOGESTREL
     Indication: CONTRACEPTION
     Dosage: DOSE/ FREQUENCY: 1 ROD (1 DF), STRENGTH: 68 MG
     Route: 059

REACTIONS (3)
  - Device dislocation [Unknown]
  - No adverse event [Unknown]
  - Medical device complication [Unknown]
